FAERS Safety Report 8342337-X (Version None)
Quarter: 2012Q2

REPORT INFORMATION
  Report Type: 
  Country: None (occurrence: None)
  Receive Date: 20120508
  Receipt Date: 20120430
  Transmission Date: 20120825
  Serious: Yes (Other)
  Sender: FDA-Public Use
  Company Number: US-AMGEN-USASP2012027170

PATIENT
  Age: 62 Year
  Sex: Female

DRUGS (1)
  1. ENBREL [Suspect]
     Indication: RHEUMATOID ARTHRITIS
     Dosage: 50 MG, UNK
     Dates: start: 20110601

REACTIONS (18)
  - CONSTIPATION [None]
  - WEIGHT INCREASED [None]
  - DIARRHOEA [None]
  - URINARY TRACT INFECTION [None]
  - DEPRESSION [None]
  - MIGRAINE [None]
  - ANXIETY [None]
  - FEAR [None]
  - NIGHTMARE [None]
  - FATIGUE [None]
  - ABDOMINAL DISTENSION [None]
  - DIZZINESS [None]
  - AMNESIA [None]
  - VAGINAL INFECTION [None]
  - BLINDNESS [None]
  - MENTAL DISORDER [None]
  - INFECTION [None]
  - EAR INFECTION [None]
